FAERS Safety Report 5468045-0 (Version None)
Quarter: 2007Q3

REPORT INFORMATION
  Report Type: 
  Country: None (occurrence: None)
  Receive Date: 20070820
  Receipt Date: 20070523
  Transmission Date: 20080115
  Serious: No
  Sender: FDA-Public Use
  Company Number: WAES 0702USA03978

PATIENT
  Age: 64 Year
  Sex: Female
  Weight: 93.441 kg

DRUGS (5)
  1. JANUVIA [Suspect]
     Indication: DIABETES MELLITUS
     Dosage: 100 MG/DAILY/PO
     Route: 048
     Dates: end: 20070201
  2. LANTUS [Concomitant]
  3. LORTAB [Concomitant]
  4. NOVOLOG [Concomitant]
  5. PREVACID [Concomitant]

REACTIONS (2)
  - OEDEMA [None]
  - WEIGHT INCREASED [None]
